FAERS Safety Report 8905663 (Version 2)
Quarter: 2013Q1

REPORT INFORMATION
  Report Type: Spontaneous
  Country: US (occurrence: US)
  Receive Date: 20121109
  Receipt Date: 20130221
  Transmission Date: 20140127
  Serious: No
  Sender: FDA-Public Use
  Company Number: US-B.I. PHARMACEUTICALS,INC./RIDGEFIELD-2012-BP-27374BP

PATIENT
  Sex: Male
  Weight: 78.93 kg

DRUGS (3)
  1. TRADJENTA [Suspect]
     Indication: TYPE 2 DIABETES MELLITUS
     Dosage: 5 MG
     Route: 048
     Dates: start: 201210
  2. GLIPIZIDE [Concomitant]
     Dosage: 10 MG
  3. METFORMIN [Concomitant]
     Dosage: 2000 MG

REACTIONS (1)
  - Glycosylated haemoglobin decreased [Recovered/Resolved]
